FAERS Safety Report 10653021 (Version 1)
Quarter: 2014Q4

REPORT INFORMATION
  Report Type: Spontaneous
  Country: US (occurrence: US)
  Receive Date: 20141215
  Receipt Date: 20141215
  Transmission Date: 20150529
  Serious: No
  Sender: FDA-Public Use
  Company Number: US-PFIZER INC-2014338795

PATIENT
  Age: 68 Year
  Sex: Female
  Weight: 52 kg

DRUGS (21)
  1. PANTOPRAZOLE [Suspect]
     Active Substance: PANTOPRAZOLE SODIUM
     Indication: GASTROOESOPHAGEAL REFLUX DISEASE
     Dosage: 40 MG, UNK
     Route: 048
     Dates: start: 20141207
  2. SLIPPERY ELM [Concomitant]
     Dosage: UNK
  3. PROBIOTICS [Concomitant]
     Active Substance: PROBIOTICS NOS
     Dosage: UNK
  4. SELENIUM [Concomitant]
     Active Substance: SELENIUM
     Dosage: 200 MG, DAILY
  5. MARSHMALLOW ROOT [Concomitant]
     Dosage: UNK
  6. MAGNESIUM [Concomitant]
     Active Substance: MAGNESIUM
     Dosage: 500 MG, UNK
  7. BETA CAROTENE [Concomitant]
     Dosage: 15000 UNK, UNK
  8. PANTOPRAZOLE [Suspect]
     Active Substance: PANTOPRAZOLE SODIUM
     Indication: OESOPHAGEAL PAIN
  9. FLAX SEED [Concomitant]
     Active Substance: FLAX SEED
     Dosage: 6000 MG, DAILY
  10. B-12 (METHYLCOBALAMIN) [Concomitant]
     Dosage: 5000 ?G, DAILY
     Route: 048
  11. PRILOSEC [Suspect]
     Active Substance: OMEPRAZOLE MAGNESIUM
     Indication: GASTROOESOPHAGEAL REFLUX DISEASE
     Dosage: UNK
  12. DGL LICORICE [Concomitant]
     Dosage: UNK
  13. ALPHA LIPOIC ACID [Concomitant]
     Active Substance: .ALPHA.-LIPOIC ACID
     Dosage: UNK
  14. VITAMIN D [Concomitant]
     Active Substance: CHOLECALCIFEROL
     Dosage: 5000, UNK, DAILY
  15. PEPCID [Suspect]
     Active Substance: FAMOTIDINE
     Indication: GASTROOESOPHAGEAL REFLUX DISEASE
     Dosage: UNK
  16. COENZYME Q10 [Concomitant]
     Active Substance: UBIDECARENONE
     Dosage: 100 MG, UNK
  17. VITAMIN E [Concomitant]
     Active Substance: .ALPHA.-TOCOPHEROL
     Dosage: 400 MG, UNK
  18. NEXIUM [Suspect]
     Active Substance: ESOMEPRAZOLE MAGNESIUM
     Dosage: UNK
  19. ACIDOPHILUS [Concomitant]
     Active Substance: LACTOBACILLUS ACIDOPHILUS
     Dosage: UNK
  20. ESTER C [Concomitant]
     Indication: OESOPHAGEAL DISORDER
     Dosage: 500 MG, 2X/DAY
  21. MULTIVITAMINS [Concomitant]
     Active Substance: VITAMINS

REACTIONS (6)
  - Anxiety [Recovering/Resolving]
  - Panic attack [Unknown]
  - Dizziness [Recovering/Resolving]
  - Palpitations [Recovering/Resolving]
  - Heart rate increased [Recovered/Resolved]
  - Chest pain [Recovering/Resolving]

NARRATIVE: CASE EVENT DATE: 20141208
